FAERS Safety Report 9656313 (Version 2)
Quarter: 2014Q1

REPORT INFORMATION
  Report Type: Spontaneous
  Country: US (occurrence: US)
  Receive Date: 20131030
  Receipt Date: 20140117
  Transmission Date: 20141002
  Serious: No
  Sender: FDA-Public Use
  Company Number: US-PFIZER INC-2013309280

PATIENT
  Age: 67 Year
  Sex: Female
  Weight: 61.22 kg

DRUGS (1)
  1. XELJANZ [Suspect]
     Indication: RHEUMATOID ARTHRITIS
     Dosage: 5 MG, 2X/DAY
     Route: 048
     Dates: start: 201306

REACTIONS (4)
  - Gastrointestinal disorder [Unknown]
  - Gastric disorder [Unknown]
  - Laboratory test abnormal [Unknown]
  - Bronchitis [Unknown]
